FAERS Safety Report 7292447 (Version 2)
Quarter: 2012Q4

REPORT INFORMATION
  Report Type: Report from Study
  Country: DE (occurrence: DE)
  Receive Date: 20100224
  Receipt Date: 20121128
  Transmission Date: 20130627
  Serious: Yes (Death, Hospitalization)
  Sender: FDA-Public Use
  Company Number: DE-ELI_LILLY_AND_COMPANY-DE201002002861

PATIENT
  Age: 47 Year
  Sex: Male
  Weight: 124 kg

DRUGS (10)
  1. TADALAFIL [Suspect]
     Indication: PULMONARY ARTERIAL HYPERTENSION
     Dosage: 40 mg, daily (1/D)
     Route: 048
     Dates: start: 20060731
  2. HEPARIN [Concomitant]
     Route: 058
  3. INSPRA [Concomitant]
     Indication: PULMONARY ARTERIAL HYPERTENSION
     Dates: start: 20060802
  4. DIOVAN [Concomitant]
     Indication: PULMONARY ARTERIAL HYPERTENSION
     Dates: start: 200610
  5. ALLOPURINOL [Concomitant]
     Dates: start: 20061123
  6. KALINOR [Concomitant]
     Dates: start: 20071104
  7. SITAXSENTAN [Concomitant]
     Dates: start: 20080118
  8. TOREM [Concomitant]
     Dates: start: 20090603
  9. VENTAVIS [Concomitant]
     Dates: start: 20090621
  10. MAGNESIUM [Concomitant]

REACTIONS (2)
  - Cardiac failure [Fatal]
  - Injection site haemorrhage [Not Recovered/Not Resolved]
